FAERS Safety Report 9692363 (Version 1)
Quarter: 2013Q4

REPORT INFORMATION
  Report Type: Spontaneous
  Country: US (occurrence: US)
  Receive Date: 20131118
  Receipt Date: 20131118
  Transmission Date: 20140711
  Serious: No
  Sender: FDA-Public Use
  Company Number: US-PFIZER INC-2013326779

PATIENT
  Age: 75 Year
  Sex: Male
  Weight: 79.82 kg

DRUGS (1)
  1. NICOTROL INHALER [Suspect]
     Indication: SMOKING CESSATION THERAPY
     Dosage: UNK (THREE CARTRIDGES A DAY)

REACTIONS (1)
  - Drug ineffective [Unknown]
